FAERS Safety Report 10645036 (Version 1)
Quarter: 2014Q4

REPORT INFORMATION
  Report Type: Spontaneous
  Country: US (occurrence: None)
  Receive Date: 20141210
  Receipt Date: 20141210
  Transmission Date: 20150529
  Serious: No
  Sender: FDA-Public Use
  Company Number: None

PATIENT
  Age: 48 Year
  Sex: Male

DRUGS (1)
  1. XTANDI [Suspect]
     Active Substance: ENZALUTAMIDE
     Indication: PROSTATE CANCER
     Dosage: 160 MG, QD, PO,  DATES OF USE: 10/4/14 3 WEEKS AGO
     Route: 048
     Dates: start: 20141004

REACTIONS (3)
  - Hyperhidrosis [None]
  - Feeling hot [None]
  - Nausea [None]

NARRATIVE: CASE EVENT DATE: 201411
